FAERS Safety Report 9413598 (Version 1)
Quarter: 2013Q2

REPORT INFORMATION
  Report Type: Spontaneous
  Country: PT (occurrence: None)
  Receive Date: 20130513
  Receipt Date: 20130513
  Transmission Date: 20140414
  Serious: Yes (Life-Threatening, Hospitalization)
  Sender: FDA-Public Use
  Company Number: GAM-161-10-PT

PATIENT
  Age: 67 Year
  Sex: Female

DRUGS (4)
  1. OCTAGAM 5 (HUMAN NORMAL IMMUNOGLOBULIN FOR INTRAVENOUS ADMINISTRATION) [Suspect]
     Indication: MYASTHENIA GRAVIS
     Route: 042
     Dates: start: 20100704, end: 20100705
  2. PYRIDOSTIGMINE BROMIDE [Concomitant]
  3. AZATHIOPRINE [Concomitant]
  4. PREDNISOLONE [Concomitant]

REACTIONS (4)
  - Pulmonary embolism [None]
  - Syncope [None]
  - Hyperhidrosis [None]
  - Cyanosis [None]
